FAERS Safety Report 9524095 (Version 5)
Quarter: 2014Q1

REPORT INFORMATION
  Report Type: Spontaneous
  Country: US (occurrence: US)
  Receive Date: 20130916
  Receipt Date: 20140207
  Transmission Date: 20141002
  Serious: Yes (Hospitalization, Other)
  Sender: FDA-Public Use
  Company Number: US-JNJFOC-20130904416

PATIENT
  Age: 44 Year
  Sex: Male
  Weight: 73.03 kg

DRUGS (5)
  1. XARELTO [Suspect]
     Indication: THROMBOSIS PROPHYLAXIS
     Route: 048
     Dates: start: 20130402
  2. XARELTO [Suspect]
     Indication: THROMBOSIS PROPHYLAXIS
     Route: 048
     Dates: end: 201305
  3. XARELTO [Suspect]
     Indication: THROMBOSIS PROPHYLAXIS
     Route: 048
     Dates: start: 201309
  4. XARELTO [Suspect]
     Indication: THROMBOSIS PROPHYLAXIS
     Route: 048
     Dates: start: 2013, end: 2013
  5. PROPECIA [Concomitant]
     Indication: ALOPECIA
     Route: 048
     Dates: start: 2003

REACTIONS (6)
  - Abdominal pain [Unknown]
  - Thrombosis [Recovered/Resolved]
  - Thrombosis [Recovered/Resolved]
  - Adrenal disorder [Unknown]
  - Adrenal haemorrhage [Recovered/Resolved]
  - Pain in extremity [Unknown]
